FAERS Safety Report 10284778 (Version 5)
Quarter: 2015Q1

REPORT INFORMATION
  Report Type: Report from Study
  Country: US (occurrence: US)
  Receive Date: 20140708
  Receipt Date: 20150213
  Transmission Date: 20150720
  Serious: Yes (Hospitalization)
  Sender: FDA-Public Use
  Company Number: US-SA-2014SA015344

PATIENT
  Age: 53 Year
  Sex: Female

DRUGS (3)
  1. AUBAGIO [Suspect]
     Active Substance: TERIFLUNOMIDE
     Indication: MULTIPLE SCLEROSIS
     Route: 048
     Dates: start: 20140124
  2. COPAXONE [Concomitant]
     Active Substance: GLATIRAMER ACETATE
     Indication: MULTIPLE SCLEROSIS
     Dates: start: 201106, end: 20140120
  3. AMOXICILLIN. [Concomitant]
     Active Substance: AMOXICILLIN
     Dates: start: 201402, end: 201402

REACTIONS (18)
  - Back pain [Not Recovered/Not Resolved]
  - Dysgeusia [Recovered/Resolved]
  - Pain [Unknown]
  - Wound complication [Unknown]
  - Fall [Unknown]
  - Headache [Recovering/Resolving]
  - Contusion [Unknown]
  - Dysuria [Unknown]
  - Urinary tract infection [Not Recovered/Not Resolved]
  - Constipation [Unknown]
  - Nausea [Unknown]
  - Vulvovaginal pain [Unknown]
  - Decreased appetite [Unknown]
  - Impaired healing [Unknown]
  - Joint injury [Unknown]
  - Ear pain [Unknown]
  - Memory impairment [Unknown]
  - Diarrhoea [Unknown]
